FAERS Safety Report 9606553 (Version 2)
Quarter: 2013Q4

REPORT INFORMATION
  Report Type: Spontaneous
  Country: US (occurrence: US)
  Receive Date: 20131008
  Receipt Date: 20131008
  Transmission Date: 20140711
  Serious: No
  Sender: FDA-Public Use
  Company Number: US-AMGEN-USASP2013047279

PATIENT
  Sex: Female

DRUGS (1)
  1. PROLIA [Suspect]
     Indication: OSTEOPOROSIS POSTMENOPAUSAL
     Dosage: UNK
     Route: 065
     Dates: start: 201304

REACTIONS (8)
  - Bone pain [Unknown]
  - Back pain [Unknown]
  - Neck pain [Unknown]
  - Gastrointestinal disorder [Unknown]
  - Gastrooesophageal reflux disease [Not Recovered/Not Resolved]
  - Oral discomfort [Unknown]
  - Muscle spasms [Unknown]
  - Pain in extremity [Unknown]
